FAERS Safety Report 13707780 (Version 10)
Quarter: 2018Q3

REPORT INFORMATION
  Report Type: Report from Study
  Country: US (occurrence: US)
  Receive Date: 20170630
  Receipt Date: 20180814
  Transmission Date: 20181010
  Serious: Yes (Hospitalization)
  Sender: FDA-Public Use
  Company Number: US-JNJFOC-20161210807

PATIENT
  Age: 59 Year
  Sex: Male

DRUGS (16)
  1. IMBRUVICA [Suspect]
     Active Substance: IBRUTINIB
     Indication: CHRONIC LYMPHOCYTIC LEUKAEMIA
     Route: 048
     Dates: start: 20180221
  2. DETROL LA [Concomitant]
     Active Substance: TOLTERODINE TARTRATE
  3. PROAIR HFA [Concomitant]
     Active Substance: ALBUTEROL SULFATE
  4. IMBRUVICA [Suspect]
     Active Substance: IBRUTINIB
     Indication: CHRONIC LYMPHOCYTIC LEUKAEMIA
     Route: 048
     Dates: start: 20170313, end: 201706
  5. ABILIFY [Concomitant]
     Active Substance: ARIPIPRAZOLE
  6. LORAZEPAM. [Concomitant]
     Active Substance: LORAZEPAM
  7. NUVIGIL [Concomitant]
     Active Substance: ARMODAFINIL
  8. PRAVASTATIN. [Concomitant]
     Active Substance: PRAVASTATIN
  9. TESTOSTERONE. [Concomitant]
     Active Substance: TESTOSTERONE
  10. BUPROPION. [Concomitant]
     Active Substance: BUPROPION
  11. OMEPRAZOLE. [Concomitant]
     Active Substance: OMEPRAZOLE
  12. MULTIVITAMINS [Concomitant]
     Active Substance: VITAMINS
  13. FLUOXETIN [Concomitant]
     Active Substance: FLUOXETINE HYDROCHLORIDE
  14. IMBRUVICA [Suspect]
     Active Substance: IBRUTINIB
     Indication: CHRONIC LYMPHOCYTIC LEUKAEMIA
     Route: 048
     Dates: start: 20161026
  15. TAMSULOSIN [Concomitant]
     Active Substance: TAMSULOSIN
  16. VITAMIN D3 [Concomitant]
     Active Substance: CHOLECALCIFEROL

REACTIONS (21)
  - Erythema nodosum [Not Recovered/Not Resolved]
  - Vertigo [Not Recovered/Not Resolved]
  - Nausea [Not Recovered/Not Resolved]
  - Constipation [Not Recovered/Not Resolved]
  - Lymphocyte count abnormal [Unknown]
  - Flatulence [Not Recovered/Not Resolved]
  - Diarrhoea [Not Recovered/Not Resolved]
  - Arthropathy [Recovering/Resolving]
  - White blood cell count decreased [Not Recovered/Not Resolved]
  - White blood cell count increased [Recovered/Resolved]
  - Sinus disorder [Not Recovered/Not Resolved]
  - Back disorder [Not Recovered/Not Resolved]
  - Pain [Unknown]
  - Lymphocytosis [Recovering/Resolving]
  - Fatigue [Unknown]
  - Gastric disorder [Recovered/Resolved]
  - Dizziness [Not Recovered/Not Resolved]
  - Hypersensitivity [Not Recovered/Not Resolved]
  - Weight increased [Unknown]
  - Energy increased [Not Recovered/Not Resolved]
  - Headache [Unknown]

NARRATIVE: CASE EVENT DATE: 201610
